FAERS Safety Report 20912388 (Version 1)
Quarter: 2022Q2

REPORT INFORMATION
  Report Type: Spontaneous
  Country: US (occurrence: None)
  Receive Date: 20220603
  Receipt Date: 20220603
  Transmission Date: 20220721
  Serious: No
  Sender: FDA-Public Use
  Company Number: 2022A173634

PATIENT
  Sex: Female

DRUGS (1)
  1. TEZSPIRE [Suspect]
     Active Substance: TEZEPELUMAB-EKKO
     Indication: Asthma
     Dosage: 210MG 1.91ML PFS, INJECT 1 PREFILLED SYRINGE SUBCUTANEOUSLY EVERY 4 WEEKS
     Route: 058

REACTIONS (1)
  - Arthralgia [Recovered/Resolved]
